FAERS Safety Report 8373461-3 (Version None)
Quarter: 2012Q2

REPORT INFORMATION
  Report Type: 
  Country: None (occurrence: None)
  Receive Date: 20120521
  Receipt Date: 20120123
  Transmission Date: 20120825
  Serious: No
  Sender: FDA-Public Use
  Company Number: US-TEVA-318937USA

PATIENT
  Age: 72 Year
  Sex: Male

DRUGS (3)
  1. ONDANSETRON HYDROCHLORIDE [Concomitant]
  2. DEXAMETHASONE [Concomitant]
  3. TREANDA [Suspect]
     Indication: CHRONIC LYMPHOCYTIC LEUKAEMIA
     Route: 042
     Dates: start: 20120123

REACTIONS (2)
  - INFUSION SITE SWELLING [None]
  - INFUSION SITE EXTRAVASATION [None]
